FAERS Safety Report 16049289 (Version 2)
Quarter: 2020Q3

REPORT INFORMATION
  Report Type: Spontaneous
  Country: BR (occurrence: BR)
  Receive Date: 20190307
  Receipt Date: 20190723
  Transmission Date: 20201104
  Serious: Yes (Hospitalization)
  Sender: FDA-Public Use
  Company Number: BR-IMPAX LABORATORIES, LLC-2019-IPXL-00639

PATIENT
  Age: 49 Year
  Sex: Female

DRUGS (3)
  1. METARAMINOL [Suspect]
     Active Substance: METARAMINOL
     Indication: ANAPHYLACTIC REACTION
     Dosage: UNK
     Route: 065
  2. EPHEDRINE. [Suspect]
     Active Substance: EPHEDRINE
     Indication: ANAPHYLACTIC REACTION
     Dosage: UNK
     Route: 065
  3. ADRENACLICK [Suspect]
     Active Substance: EPINEPHRINE
     Indication: ANAPHYLACTIC REACTION
     Dosage: 100 MICROGRAM EVERY 2?3 MINUTES (5 TIMES)
     Route: 065

REACTIONS (1)
  - Drug ineffective [Recovered/Resolved]
